FAERS Safety Report 8029293-9 (Version None)
Quarter: 2012Q1

REPORT INFORMATION
  Report Type: 
  Country: None (occurrence: None)
  Receive Date: 20120106
  Receipt Date: 20111229
  Transmission Date: 20120608
  Serious: Yes (Hospitalization)
  Sender: FDA-Public Use
  Company Number: AU-ABBOTT-11P-008-0887699-04

PATIENT
  Sex: Female

DRUGS (22)
  1. OXYCODONE HCL [Concomitant]
     Indication: CROHN'S DISEASE
     Dates: start: 20090704
  2. IMODIUM [Concomitant]
     Indication: CROHN'S DISEASE
  3. FISH OIL [Concomitant]
     Indication: SUPPLEMENTATION THERAPY
     Dates: start: 20090701
  4. BACTRIM DS [Concomitant]
     Indication: ANTIFUNGAL PROPHYLAXIS
     Dates: start: 20090706
  5. OXAZEPAM [Concomitant]
     Indication: SEDATION
     Dates: start: 20090701
  6. HUMIRA [Suspect]
     Indication: CROHN'S DISEASE
     Route: 058
     Dates: start: 20090211, end: 20090211
  7. HUMIRA [Suspect]
     Route: 058
  8. METFORMIN HCL [Concomitant]
     Indication: BLOOD GLUCOSE INCREASED
     Dates: start: 20110211
  9. INNER HEALTH PLUS [Concomitant]
     Indication: MEDICAL DIET
     Dates: start: 20090701
  10. PANTOPRAZOLE [Concomitant]
  11. PREDNISOLONE [Concomitant]
     Indication: CROHN'S DISEASE
     Dates: start: 20090201
  12. MULTI-VITAMIN [Concomitant]
     Indication: MEDICAL DIET
     Dates: start: 20090701
  13. PANTOPRAZOLE [Concomitant]
     Indication: ABDOMINAL PAIN UPPER
     Dosage: DAILY PRN
     Dates: start: 20100218
  14. CITALOPRAM HYDROBROMIDE [Concomitant]
     Indication: DEPRESSION
     Dates: start: 20090716
  15. ZOLPIDEM [Concomitant]
     Indication: SEDATION
     Dates: start: 20090101
  16. ISOPHANE INSULIN [Concomitant]
     Indication: HYPERGLYCAEMIA
     Dosage: VARIABLE
     Dates: start: 20100218
  17. MYCOPHENOLATE MOFETIL [Concomitant]
     Indication: LIVER TRANSPLANT
     Dates: start: 20101101
  18. IMODIUM [Concomitant]
     Indication: DIARRHOEA
     Dosage: 1 - 2 TABLETS
     Dates: start: 20090430
  19. VENTOLIN [Concomitant]
     Indication: ASTHMA
     Route: 055
     Dates: start: 20090701
  20. TACROLIMUS [Concomitant]
     Indication: LIVER TRANSPLANT
     Dosage: VARIABLE DOSE
     Dates: start: 19980101
  21. HUMIRA [Suspect]
     Route: 058
  22. NORIMIN [Concomitant]
     Indication: ORAL CONTRACEPTION
     Dates: start: 20090101

REACTIONS (1)
  - MALAISE [None]
